FAERS Safety Report 8862538 (Version 7)
Quarter: 2014Q2

REPORT INFORMATION
  Report Type: Spontaneous
  Country: US (occurrence: US)
  Receive Date: 20121026
  Receipt Date: 20140502
  Transmission Date: 20141212
  Serious: Yes (Hospitalization, Disabling, Other)
  Sender: FDA-Public Use
  Company Number: US-009507513-1210USA010246

PATIENT
  Sex: Female
  Weight: 61 kg

DRUGS (7)
  1. FOSAMAX [Suspect]
     Indication: OSTEOPENIA
     Dosage: UNK
     Route: 048
     Dates: start: 1995, end: 201201
  2. FOSAMAX [Suspect]
     Dosage: 5 MG, UNK
     Route: 048
  3. FOSAMAX [Suspect]
     Indication: OSTEOPENIA
     Dosage: UNK
     Route: 048
     Dates: start: 1995, end: 2010
  4. ALENDRONATE SODIUM [Suspect]
     Indication: OSTEOPENIA
     Dosage: 70 MG, UNK
     Route: 048
  5. ALENDRONATE SODIUM [Suspect]
     Dosage: 35 MG, UNK
     Route: 048
  6. ACTONEL [Concomitant]
     Dosage: 35 MG, UNK
     Dates: start: 200206, end: 200707
  7. SYNTHROID [Concomitant]
     Indication: HYPOTHYROIDISM

REACTIONS (41)
  - Femur fracture [Not Recovered/Not Resolved]
  - Low turnover osteopathy [Not Recovered/Not Resolved]
  - Femur fracture [Not Recovered/Not Resolved]
  - Osteoporosis [Not Recovered/Not Resolved]
  - Multiple fractures [Not Recovered/Not Resolved]
  - Femur fracture [Unknown]
  - Intramedullary rod insertion [Unknown]
  - Haemorrhagic anaemia [Recovering/Resolving]
  - Femoral neck fracture [Unknown]
  - Basal cell carcinoma [Unknown]
  - Basal cell carcinoma [Unknown]
  - Intramedullary rod insertion [Unknown]
  - Muscle abscess [Recovered/Resolved]
  - Anaemia postoperative [Unknown]
  - Renal failure acute [Recovered/Resolved]
  - Hip arthroplasty [Unknown]
  - Femur fracture [Unknown]
  - Osteoporosis [Unknown]
  - Hyperlipidaemia [Unknown]
  - Impaired healing [Unknown]
  - Spondylolisthesis [Unknown]
  - Bursitis [Unknown]
  - Spinal compression fracture [Unknown]
  - Spinal column stenosis [Unknown]
  - Intervertebral disc protrusion [Unknown]
  - Chondrocalcinosis [Unknown]
  - Thoracic vertebral fracture [Unknown]
  - Osteoarthritis [Unknown]
  - Osteomyelitis [Unknown]
  - Osteoarthritis [Unknown]
  - Cardiac murmur [Unknown]
  - Phlebolith [Unknown]
  - Anaemia postoperative [Recovering/Resolving]
  - Blood pressure decreased [Unknown]
  - Medical device removal [Unknown]
  - Aortic arteriosclerosis [Unknown]
  - Aortic stenosis [Unknown]
  - Joint effusion [Unknown]
  - Limb discomfort [Unknown]
  - Back pain [Not Recovered/Not Resolved]
  - Gastrooesophageal reflux disease [Unknown]
